FAERS Safety Report 16852593 (Version 1)
Quarter: 2019Q3

REPORT INFORMATION
  Report Type: Spontaneous
  Country: US (occurrence: US)
  Receive Date: 20190925
  Receipt Date: 20190925
  Transmission Date: 20191005
  Serious: No
  Sender: FDA-Public Use
  Company Number: US-SA-2019SA263285

PATIENT
  Sex: Female

DRUGS (7)
  1. CLOBETASOL [Concomitant]
     Active Substance: CLOBETASOL
  2. NORETHINDRONE ACETATE AND ETHINYL ESTRADIOL [Concomitant]
     Active Substance: ETHINYL ESTRADIOL\NORETHINDRONE ACETATE
  3. IBUPROFEN. [Concomitant]
     Active Substance: IBUPROFEN
  4. PREDNISONE. [Concomitant]
     Active Substance: PREDNISONE
  5. JUNEL [Concomitant]
     Active Substance: ETHINYL ESTRADIOL\NORETHINDRONE ACETATE
  6. DUPIXENT [Suspect]
     Active Substance: DUPILUMAB
     Indication: ECZEMA
     Dosage: 300 MG, QOW
     Route: 058
  7. PROPIONATE [Concomitant]

REACTIONS (2)
  - Amenorrhoea [Unknown]
  - Menstruation irregular [Unknown]

NARRATIVE: CASE EVENT DATE: 2019
